FAERS Safety Report 9148502 (Version 1)
Quarter: 2013Q1

REPORT INFORMATION
  Report Type: Spontaneous
  Country: PL (occurrence: PL)
  Receive Date: 20130308
  Receipt Date: 20130308
  Transmission Date: 20140127
  Serious: Yes (Life-Threatening)
  Sender: FDA-Public Use
  Company Number: PL-CELGENEUS-129-21660-13030036

PATIENT
  Sex: Female

DRUGS (1)
  1. ABRAXANE [Suspect]
     Indication: MALIGNANT NIPPLE NEOPLASM
     Route: 041
     Dates: start: 20130128, end: 20130128

REACTIONS (2)
  - Flushing [Recovered/Resolved]
  - Blood pressure increased [Recovered/Resolved]
